FAERS Safety Report 8189342-4 (Version None)
Quarter: 2012Q1

REPORT INFORMATION
  Report Type: 
  Country: None (occurrence: None)
  Receive Date: 20120302
  Receipt Date: 20120223
  Transmission Date: 20120608
  Serious: Yes (Hospitalization)
  Sender: FDA-Public Use
  Company Number: 7114898

PATIENT
  Age: 79 Year
  Sex: Male

DRUGS (6)
  1. FLECAINIDE ACETATE [Concomitant]
  2. AVODART (DUTASTERIDE) (DUTASTERIDE) [Concomitant]
  3. EXFORGE (AMLODIPINE W/VALSARTAN) (AMLODIPINE W/VALSARTAN) [Concomitant]
  4. LEVOTHYROXINE SODIUM [Suspect]
     Indication: PRODUCT USED FOR UNKNOWN INDICATION
     Dosage: 1 DF (1 DF, 1 IN 1 D) ORAL
     Route: 048
  5. PREVISCAN (FLUINDIONE) (TABLET) (FLUINDIONE) [Suspect]
     Indication: PROPHYLAXIS
     Dosage: 1/4 DAY 1; 3/4 DOSAGE FORM DAY 2 ORAL
     Route: 048
  6. ALLOPURINOL [Concomitant]

REACTIONS (2)
  - BLOOD CREATINE PHOSPHOKINASE INCREASED [None]
  - MYOGLOBIN BLOOD INCREASED [None]
